FAERS Safety Report 6187142-8 (Version None)
Quarter: 2009Q2

REPORT INFORMATION
  Report Type: 
  Country: None (occurrence: None)
  Receive Date: 20090512
  Receipt Date: 20090430
  Transmission Date: 20091009
  Serious: Yes (Hospitalization)
  Sender: FDA-Public Use
  Company Number: JP-AVENTIS-200911251JP

PATIENT

DRUGS (1)
  1. TAXOTERE [Suspect]
     Route: 041

REACTIONS (4)
  - CAROTID ARTERY THROMBOSIS [None]
  - OEDEMA PERIPHERAL [None]
  - SUBCLAVIAN VEIN THROMBOSIS [None]
  - VENA CAVA THROMBOSIS [None]
